FAERS Safety Report 7374590-3 (Version None)
Quarter: 2011Q1

REPORT INFORMATION
  Report Type: 
  Country: None (occurrence: None)
  Receive Date: 20110325
  Receipt Date: 20100430
  Transmission Date: 20110831
  Serious: No
  Sender: FDA-Public Use
  Company Number: US-MYLANLABS-2010S1006425

PATIENT
  Age: 72 Year
  Sex: Female

DRUGS (21)
  1. AMLODIPINE [Concomitant]
  2. VITAMIN B6 [Concomitant]
  3. ACTOS [Concomitant]
  4. FENTANYL-100 [Suspect]
     Indication: PAIN
     Dosage: CHANGED Q72H
     Route: 062
  5. ASPIRIN [Concomitant]
  6. ASCORBIC ACID [Concomitant]
  7. GLYBURIDE [Concomitant]
  8. HYDROMORPHONE HCL [Concomitant]
  9. MULTI-VITAMIN [Concomitant]
  10. FOLIC ACID [Concomitant]
  11. VITAMIN D [Concomitant]
  12. MAGNESIUM [Concomitant]
  13. ZINC [Concomitant]
  14. LISINOPRIL [Concomitant]
  15. GABAPENTIN [Concomitant]
  16. ALENDRONATE [Concomitant]
  17. VITAMIN B-12 [Concomitant]
  18. METOPROLOL [Concomitant]
  19. PREDNISONE [Concomitant]
  20. DOXYCYCLINE [Concomitant]
     Dates: start: 20100101
  21. CALCIUM [Concomitant]

REACTIONS (2)
  - FLUSHING [None]
  - HOT FLUSH [None]
